FAERS Safety Report 6827108-5 (Version None)
Quarter: 2010Q3

REPORT INFORMATION
  Report Type: 
  Country: None (occurrence: None)
  Receive Date: 20100709
  Receipt Date: 20100625
  Transmission Date: 20110219
  Serious: Yes (Other)
  Sender: FDA-Public Use
  Company Number: NO-BAYER-201031551GPV

PATIENT
  Age: 64 Year
  Sex: Male
  Weight: 90 kg

DRUGS (5)
  1. FLUDARABINE [Suspect]
     Indication: CHRONIC LYMPHOCYTIC LEUKAEMIA
     Route: 048
     Dates: start: 20081205, end: 20081207
  2. CYCLOPHOSPHAMIDE [Suspect]
     Indication: CHRONIC LYMPHOCYTIC LEUKAEMIA
     Route: 048
     Dates: start: 20081205, end: 20081207
  3. ALEMTUZUMAB [Suspect]
     Indication: CHRONIC LYMPHOCYTIC LEUKAEMIA
     Route: 058
     Dates: start: 20081205, end: 20081205
  4. TRIMETOPRIM - SULPHAMETOXAZOL [Concomitant]
     Indication: ANTIFUNGAL PROPHYLAXIS
     Dosage: 80 MG / 400 MG
     Route: 048
     Dates: start: 20080725, end: 20090401
  5. VALACYCLOVIR [Concomitant]
     Indication: PROPHYLAXIS
     Route: 048
     Dates: start: 20080725, end: 20090401

REACTIONS (1)
  - SQUAMOUS CELL CARCINOMA [None]
